FAERS Safety Report 10438848 (Version 1)
Quarter: 2014Q3

REPORT INFORMATION
  Report Type: Spontaneous
  Country: US (occurrence: US)
  Receive Date: 20140908
  Receipt Date: 20140908
  Transmission Date: 20150326
  Serious: No
  Sender: FDA-Public Use
  Company Number: US-BRISTOL-MYERS SQUIBB COMPANY-21182746

PATIENT
  Age: 50 Year
  Sex: Female

DRUGS (8)
  1. LITHIUM [Concomitant]
     Active Substance: LITHIUM CARBONATE
  2. ABILIFY [Suspect]
     Active Substance: ARIPIPRAZOLE
     Indication: BIPOLAR I DISORDER
     Dosage: DOSE REDUCED TO 10MG
     Route: 048
     Dates: start: 201307
  3. COGENTIN [Concomitant]
     Active Substance: BENZTROPINE MESYLATE
     Indication: BIPOLAR I DISORDER
  4. ABILIFY [Suspect]
     Active Substance: ARIPIPRAZOLE
     Indication: DEPRESSION
     Dosage: DOSE REDUCED TO 10MG
     Route: 048
     Dates: start: 201307
  5. BENZTROPINE [Concomitant]
     Active Substance: BENZTROPINE
     Indication: DEPRESSION
  6. WELLBUTRIN [Concomitant]
     Active Substance: BUPROPION HYDROCHLORIDE
  7. COGENTIN [Concomitant]
     Active Substance: BENZTROPINE MESYLATE
     Indication: DEPRESSION
  8. BENZTROPINE [Concomitant]
     Active Substance: BENZTROPINE
     Indication: BIPOLAR I DISORDER

REACTIONS (4)
  - Heart rate increased [Recovered/Resolved]
  - Hypoaesthesia [Not Recovered/Not Resolved]
  - Hypertension [Recovered/Resolved]
  - Pain [Not Recovered/Not Resolved]

NARRATIVE: CASE EVENT DATE: 201307
